FAERS Safety Report 19676714 (Version 3)
Quarter: 2022Q2

REPORT INFORMATION
  Report Type: Spontaneous
  Country: KR (occurrence: KR)
  Receive Date: 20210810
  Receipt Date: 20220620
  Transmission Date: 20220721
  Serious: Yes (Other)
  Sender: FDA-Public Use
  Company Number: KR-ALXN-A202108133

PATIENT
  Age: 54 Year
  Sex: Male

DRUGS (2)
  1. SOLIRIS [Suspect]
     Active Substance: ECULIZUMAB
     Indication: Paroxysmal nocturnal haemoglobinuria
     Dosage: 600 MG , QW
     Route: 042
     Dates: start: 20210312
  2. SOLIRIS [Suspect]
     Active Substance: ECULIZUMAB
     Dosage: 900 MG , Q2W
     Route: 042
     Dates: start: 2021

REACTIONS (3)
  - Breakthrough haemolysis [Unknown]
  - Blood lactate dehydrogenase increased [Not Recovered/Not Resolved]
  - Coombs test positive [Not Recovered/Not Resolved]

NARRATIVE: CASE EVENT DATE: 20210101
